FAERS Safety Report 23919436 (Version 1)
Quarter: 2024Q2

REPORT INFORMATION
  Report Type: Spontaneous
  Country: PL (occurrence: PL)
  Receive Date: 20240530
  Receipt Date: 20240530
  Transmission Date: 20240715
  Serious: Yes (Death, Other)
  Sender: FDA-Public Use
  Company Number: PL-SA-SAC20240529001177

PATIENT
  Age: 75 Year
  Sex: Male

DRUGS (1)
  1. FASTURTEC [Suspect]
     Active Substance: RASBURICASE
     Indication: Product used for unknown indication
     Dosage: UNK
     Route: 065
     Dates: start: 20240524, end: 20240525

REACTIONS (1)
  - Laryngeal cancer [Fatal]

NARRATIVE: CASE EVENT DATE: 20240525
